FAERS Safety Report 5106517-9 (Version None)
Quarter: 2006Q3

REPORT INFORMATION
  Report Type: 
  Country: None (occurrence: None)
  Receive Date: 20060918
  Receipt Date: 20060824
  Transmission Date: 20061208
  Serious: Yes (Other)
  Sender: FDA-Public Use
  Company Number: PHNU2006DE02925

PATIENT
  Sex: Female

DRUGS (1)
  1. ELIDEL [Suspect]
     Indication: NEURODERMATITIS
     Dosage: UNK, PRN
     Route: 061

REACTIONS (9)
  - APPLICATION SITE ANAESTHESIA [None]
  - APPLICATION SITE IRRITATION [None]
  - APPLICATION SITE PARAESTHESIA [None]
  - APPLICATION SITE WARMTH [None]
  - BURNING SENSATION [None]
  - CARPAL TUNNEL SYNDROME [None]
  - FEELING HOT [None]
  - HYPOAESTHESIA [None]
  - PARAESTHESIA [None]
